FAERS Safety Report 17175408 (Version 1)
Quarter: 2019Q4

REPORT INFORMATION
  Report Type: Spontaneous
  Country: US (occurrence: US)
  Receive Date: 20191219
  Receipt Date: 20191219
  Transmission Date: 20200122
  Serious: No
  Sender: FDA-Public Use
  Company Number: US-UCBSA-113473

PATIENT
  Age: 55 Year
  Sex: Female
  Weight: 54.43 kg

DRUGS (2)
  1. CIMZIA [Suspect]
     Active Substance: CERTOLIZUMAB PEGOL
     Indication: CROHN^S DISEASE
     Dosage: LOT NO. 111083 AND EXP DATE. APR-2016 (FROM 21-JAN-2014 INJECTION)
     Route: 058
     Dates: start: 20090507
  2. PROGEST [Concomitant]
     Indication: MENOPAUSE
     Dosage: 2/100/0.25 UNKNOWN ;2X/DAY (BID);
     Dates: start: 201310

REACTIONS (1)
  - Musculoskeletal pain [Not Recovered/Not Resolved]

NARRATIVE: CASE EVENT DATE: 20140218
